FAERS Safety Report 6207007-2 (Version None)
Quarter: 2009Q2

REPORT INFORMATION
  Report Type: 
  Country: None (occurrence: None)
  Receive Date: 20090528
  Receipt Date: 20090210
  Transmission Date: 20091009
  Serious: Yes (Other)
  Sender: FDA-Public Use
  Company Number: SE-PFIZER INC-2008090601

PATIENT
  Sex: Male

DRUGS (1)
  1. DEPO-MEDROL [Suspect]
     Indication: SEASONAL ALLERGY

REACTIONS (1)
  - INJECTION SITE NECROSIS [None]
